FAERS Safety Report 7428755-2 (Version None)
Quarter: 2011Q2

REPORT INFORMATION
  Report Type: 
  Country: None (occurrence: None)
  Receive Date: 20110421
  Receipt Date: 20110414
  Transmission Date: 20111010
  Serious: Yes (Death, Hospitalization)
  Sender: FDA-Public Use
  Company Number: FR-PFIZER INC-2011085454

PATIENT
  Age: 79 Year
  Sex: Female

DRUGS (6)
  1. CORDARONE [Suspect]
     Indication: ATRIAL FIBRILLATION
     Dosage: 200 MG, DAILY
     Route: 048
  2. AMLODIPINE BESYLATE [Concomitant]
  3. DAFLON [Concomitant]
  4. PRAVASTATIN SODIUM [Concomitant]
  5. ALISKIREN [Concomitant]
  6. PREVISCAN [Concomitant]

REACTIONS (1)
  - LUNG DISORDER [None]
